FAERS Safety Report 6007030-7 (Version None)
Quarter: 2008Q4

REPORT INFORMATION
  Report Type: 
  Country: None (occurrence: None)
  Receive Date: 20081217
  Receipt Date: 20060516
  Transmission Date: 20090506
  Serious: Yes (Other)
  Sender: FDA-Public Use
  Company Number: US-BAXTER-2008BH010201

PATIENT
  Age: 21 Year
  Sex: Male

DRUGS (1)
  1. POLYGAM [Suspect]
     Indication: ENCEPHALITIS
     Dosage: DOSE UNIT:UNKNOWN
     Route: 042

REACTIONS (3)
  - CONDITION AGGRAVATED [None]
  - LETHARGY [None]
  - MALAISE [None]
